FAERS Safety Report 8167489-6 (Version None)
Quarter: 2012Q1

REPORT INFORMATION
  Report Type: 
  Country: None (occurrence: None)
  Receive Date: 20120227
  Receipt Date: 20120217
  Transmission Date: 20120608
  Serious: Yes (Other)
  Sender: FDA-Public Use
  Company Number: US-JNJFOC-20120209961

PATIENT
  Sex: Female
  Weight: 89.81 kg

DRUGS (2)
  1. STELARA [Suspect]
     Indication: PUSTULAR PSORIASIS
     Dosage: INITIATED ^TWO YEARS AGO^
     Route: 058
  2. ALL OTHER THERAPEUTIC PRODUCTS [Concomitant]
     Indication: DIABETES MELLITUS

REACTIONS (4)
  - EYE IRRITATION [None]
  - VISION BLURRED [None]
  - EYE DISORDER [None]
  - EYE PRURITUS [None]
